FAERS Safety Report 8770092 (Version 10)
Quarter: 2013Q3

REPORT INFORMATION
  Report Type: Report from Study
  Country: CA (occurrence: CA)
  Receive Date: 20120906
  Receipt Date: 20130708
  Transmission Date: 20140515
  Serious: Yes (Hospitalization, Disabling)
  Sender: FDA-Public Use
  Company Number: CA-JNJFOC-20120813888

PATIENT
  Age: 59 Year
  Sex: Female
  Weight: 66 kg

DRUGS (9)
  1. REMICADE [Suspect]
     Indication: PSORIASIS
     Route: 042
     Dates: start: 20120624
  2. REMICADE [Suspect]
     Indication: PSORIASIS
     Dosage: 1ST INITIATION DOSE (0,2, 6 WEEKS)
     Route: 042
     Dates: start: 20120610
  3. REMICADE [Suspect]
     Indication: PSORIASIS
     Dosage: 3RD INITIATION DOSE
     Route: 042
     Dates: start: 20120717, end: 20120717
  4. REMICADE [Suspect]
     Indication: PSORIASIS
     Dosage: 1ST INITIATION DOSE (0,2, 6 WEEKS)
     Route: 042
     Dates: start: 20120610
  5. REMICADE [Suspect]
     Indication: PSORIASIS
     Dosage: 3RD INITIATION DOSE
     Route: 042
     Dates: start: 20120717, end: 20120717
  6. REMICADE [Suspect]
     Indication: PSORIASIS
     Route: 042
     Dates: start: 20120624
  7. SYNTHROID [Concomitant]
     Indication: HYPOTHYROIDISM
     Route: 065
  8. GABAPENTIN [Concomitant]
     Indication: MYALGIA
     Route: 065
  9. SYMBICORT [Concomitant]
     Indication: EMPHYSEMA
     Dosage: 200 (UNITS UNSPECIFIED)
     Route: 065

REACTIONS (6)
  - Toxic optic neuropathy [Unknown]
  - Pyelonephritis [Unknown]
  - Optic neuritis [Not Recovered/Not Resolved]
  - Eye haemorrhage [Unknown]
  - Drug hypersensitivity [Not Recovered/Not Resolved]
  - Papilloedema [Unknown]
